FAERS Safety Report 12375990 (Version 1)
Quarter: 2016Q2

REPORT INFORMATION
  Report Type: Report from Study
  Country: CN (occurrence: CN)
  Receive Date: 20160517
  Receipt Date: 20160517
  Transmission Date: 20160815
  Serious: Yes (Hospitalization)
  Sender: FDA-Public Use
  Company Number: CN-ASTELLAS-2014US021586

PATIENT
  Age: 27 Year
  Sex: Female
  Weight: 46 kg

DRUGS (5)
  1. ATG-FRESENIUS [Suspect]
     Active Substance: LAPINE T-LYMPHOCYTE IMMUNE GLOBULIN
     Indication: PROPHYLAXIS AGAINST TRANSPLANT REJECTION
     Route: 042
     Dates: start: 20140529, end: 20140602
  2. CELLCEPT [Suspect]
     Active Substance: MYCOPHENOLATE MOFETIL\MYCOPHENOLATE MOFETIL HYDROCHLORIDE
     Indication: PROPHYLAXIS AGAINST TRANSPLANT REJECTION
     Dosage: 1000 - 1500 MG, EVERY 12 HOURS
     Route: 048
     Dates: start: 20140529, end: 20141223
  3. PREDNISONE. [Concomitant]
     Active Substance: PREDNISONE
     Indication: PROPHYLAXIS AGAINST TRANSPLANT REJECTION
     Dosage: 5 - 20 MG, ONCE DAILY
     Route: 048
     Dates: start: 20140601
  4. TACROLIMUS. [Suspect]
     Active Substance: TACROLIMUS
     Indication: PROPHYLAXIS AGAINST TRANSPLANT REJECTION
     Dosage: 4 - 11 MG, ONCE DAILY
     Route: 048
     Dates: start: 20140530, end: 20141224
  5. MYFORTIC [Concomitant]
     Active Substance: MYCOPHENOLATE SODIUM
     Indication: PROPHYLAXIS AGAINST TRANSPLANT REJECTION
     Dosage: 0.72 G, EVERY 12 HOURS
     Route: 048
     Dates: start: 20141223

REACTIONS (2)
  - Renal tubular atrophy [Recovered/Resolved]
  - Kidney fibrosis [Recovered/Resolved]

NARRATIVE: CASE EVENT DATE: 20141223
